FAERS Safety Report 16243906 (Version 1)
Quarter: 2019Q2

REPORT INFORMATION
  Report Type: Spontaneous
  Country: US (occurrence: US)
  Receive Date: 20190425
  Receipt Date: 20190425
  Transmission Date: 20190711
  Serious: Yes (Disabling, Other)
  Sender: FDA-Public Use
  Company Number: None

PATIENT
  Age: 6 Year
  Sex: Male
  Weight: 18 kg

DRUGS (1)
  1. MIRALAX [Suspect]
     Active Substance: POLYETHYLENE GLYCOL 3350
     Indication: CONSTIPATION
     Dosage: ?          QUANTITY:17 GRAMS;OTHER ROUTE:THROUGH G-TUBE?

REACTIONS (12)
  - Anger [None]
  - Aggression [None]
  - Anxiety [None]
  - Tremor [None]
  - Attention deficit/hyperactivity disorder [None]
  - Logorrhoea [None]
  - Neuropsychiatric symptoms [None]
  - Agitation [None]
  - Drug hypersensitivity [None]
  - Mood swings [None]
  - Dysarthria [None]
  - Dysphemia [None]

NARRATIVE: CASE EVENT DATE: 20190424
